FAERS Safety Report 5115373-4 (Version None)
Quarter: 2006Q3

REPORT INFORMATION
  Report Type: 
  Country: None (occurrence: None)
  Receive Date: 20060922
  Receipt Date: 20060913
  Transmission Date: 20061208
  Serious: No
  Sender: FDA-Public Use
  Company Number: 06H-087-0310176-00

PATIENT
  Age: 40 Year
  Sex: Female
  Weight: 48 kg

DRUGS (16)
  1. PRECEDEX [Suspect]
     Indication: SEDATION
     Dosage: 0.2 MCG/KG/HR, INTRAVENOUS
     Route: 042
     Dates: start: 20060117, end: 20060118
  2. FENTANYL CITRATE [Concomitant]
  3. PANCURONIUM BROMIDE [Concomitant]
  4. MIDAZOLAM HCL [Concomitant]
  5. HEPARIN SODIUM [Concomitant]
  6. CEFOTIAM HYDROCHLORIDE [Concomitant]
  7. DISOPYRAMIDE [Concomitant]
  8. DIGOXIN [Concomitant]
  9. FLECAINIDE ACETATE [Concomitant]
  10. WARFARIN SODIUM [Concomitant]
  11. FUROSEMIDE [Concomitant]
  12. POTASSIUM CHLORIDE [Concomitant]
  13. FERROUS CITRATE [Concomitant]
  14. TORSEMIDE [Concomitant]
  15. FAMOTIDINE [Concomitant]
  16. LEVOFLOXACIN [Concomitant]

REACTIONS (3)
  - ASPARTATE AMINOTRANSFERASE INCREASED [None]
  - CARDIAC OUTPUT DECREASED [None]
  - HYPOALBUMINAEMIA [None]
